FAERS Safety Report 15927107 (Version 5)
Quarter: 2019Q2

REPORT INFORMATION
  Report Type: Report from Study
  Country: JP (occurrence: JP)
  Receive Date: 20190206
  Receipt Date: 20190621
  Transmission Date: 20190711
  Serious: Yes (Death, Life-Threatening)
  Sender: FDA-Public Use
  Company Number: JP-AMGEN-JPNSL2019011476

PATIENT
  Age: 70 Year
  Sex: Female

DRUGS (6)
  1. DECADRON [Concomitant]
     Active Substance: DEXAMETHASONE
     Dosage: 20 MILLIGRAM, QD
     Route: 041
     Dates: start: 20190124, end: 20190124
  2. FILGRASTIM [Concomitant]
     Active Substance: FILGRASTIM
     Indication: PROPHYLAXIS
     Dosage: UNK
     Dates: end: 20190131
  3. DECADRON [Concomitant]
     Active Substance: DEXAMETHASONE
     Indication: PYREXIA
     Dosage: UNK
  4. DEXAMETHASONE. [Concomitant]
     Active Substance: DEXAMETHASONE
     Indication: PROPHYLAXIS
     Dosage: UNK
     Dates: end: 20190131
  5. BLINATUMOMAB [Suspect]
     Active Substance: BLINATUMOMAB
     Indication: ACUTE LYMPHOCYTIC LEUKAEMIA REFRACTORY
     Dosage: 5 MICROGRAM/SQ. METER, QD
     Route: 041
     Dates: start: 20190117, end: 20190123
  6. BLINATUMOMAB [Suspect]
     Active Substance: BLINATUMOMAB
     Dosage: 15 MICROGRAM/SQ. METER, QD
     Route: 041
     Dates: start: 20190124, end: 20190127

REACTIONS (3)
  - Disseminated intravascular coagulation [Not Recovered/Not Resolved]
  - Bone marrow failure [Not Recovered/Not Resolved]
  - Septic shock [Fatal]

NARRATIVE: CASE EVENT DATE: 20190118
